FAERS Safety Report 6364097-4 (Version None)
Quarter: 2009Q3

REPORT INFORMATION
  Report Type: 
  Country: None (occurrence: None)
  Receive Date: 20090919
  Receipt Date: 20090720
  Transmission Date: 20100115
  Serious: No
  Sender: FDA-Public Use
  Company Number: US-ABBOTT-09P-163-0581904-00

PATIENT
  Sex: Female
  Weight: 54.934 kg

DRUGS (3)
  1. HUMIRA [Suspect]
     Indication: CROHN'S DISEASE
     Dosage: DAY 1; LOADING DOSE OF 4
     Dates: start: 20090624
  2. HUMIRA [Suspect]
     Dosage: DAY 15
  3. HUMIRA [Suspect]

REACTIONS (4)
  - ASTHENIA [None]
  - CROHN'S DISEASE [None]
  - INJECTION SITE PAIN [None]
  - NAUSEA [None]
